FAERS Safety Report 4907256-7 (Version None)
Quarter: 2006Q1

REPORT INFORMATION
  Report Type: 
  Country: None (occurrence: None)
  Receive Date: 20060207
  Receipt Date: 20060119
  Transmission Date: 20060701
  Serious: Yes (Other)
  Sender: FDA-Public Use
  Company Number: US200601003418

PATIENT
  Age: 80 Year
  Sex: Male

DRUGS (4)
  1. HUMALOG [Suspect]
     Indication: DIABETES MELLITUS
  2. HUMULIN N [Suspect]
     Indication: DIABETES MELLITUS
     Dosage: 28 U, EACH EVENING,
  3. HUMALOG PEN (HUMALOG PEN) PEN, DISPOSABLE [Concomitant]
  4. HUMULIN N PEN (HUMULIN N PEN) PEN, DISPOSABLE [Concomitant]

REACTIONS (6)
  - DIABETIC EYE DISEASE [None]
  - DYSPNOEA [None]
  - MEDICAL DEVICE COMPLICATION [None]
  - OXYGEN SATURATION DECREASED [None]
  - PHARMACEUTICAL PRODUCT COMPLAINT [None]
  - VISUAL ACUITY REDUCED [None]
